FAERS Safety Report 13300765 (Version 1)
Quarter: 2017Q1

REPORT INFORMATION
  Report Type: Spontaneous
  Country: US (occurrence: US)
  Receive Date: 20170306
  Receipt Date: 20170306
  Transmission Date: 20170428
  Serious: Yes (Other)
  Sender: FDA-Public Use
  Company Number: None

PATIENT
  Age: 67 Year
  Sex: Male
  Weight: 132.7 kg

DRUGS (6)
  1. TPRAL [Concomitant]
  2. TYLENOL [Concomitant]
     Active Substance: ACETAMINOPHEN
  3. ASPIRIN. [Concomitant]
     Active Substance: ASPIRIN
  4. WATER PILLS [Concomitant]
     Active Substance: UNSPECIFIED INGREDIENT
  5. BYDUREON [Suspect]
     Active Substance: EXENATIDE
     Indication: DIABETES MELLITUS
     Dosage: ?          QUANTITY:12 INJECTION(S);OTHER FREQUENCY:1 A WEEK;?
     Route: 058
     Dates: start: 20170211, end: 20170218
  6. LIPATURE [Concomitant]

REACTIONS (3)
  - Apparent death [None]
  - Loss of consciousness [None]
  - Vomiting [None]

NARRATIVE: CASE EVENT DATE: 20170212
